FAERS Safety Report 9862130 (Version 2)
Quarter: 2014Q1

REPORT INFORMATION
  Report Type: Report from Study
  Country: DE (occurrence: DE)
  Receive Date: 20140203
  Receipt Date: 20140218
  Transmission Date: 20141002
  Serious: Yes (Other)
  Sender: FDA-Public Use
  Company Number: DE-BEH-2014040381

PATIENT
  Age: 82 Year
  Sex: Female
  Weight: 35.6 kg

DRUGS (7)
  1. PRIVIGEN [Suspect]
     Indication: HYPOGAMMAGLOBULINAEMIA
     Dosage: INFUSION RATE: MIN 10.8 ML/H MAX. 72 ML/H
     Dates: start: 20130212, end: 20130212
  2. PRIVIGEN [Suspect]
     Dosage: INFUSION RATE: MIN. 10.68 ML/H MAX. 71 ML/H
     Dates: start: 20130220, end: 20130220
  3. PRIVIGEN [Suspect]
     Dosage: INFUSION RATE: MIN. 21 ML/H  MAX. 170 ML/H
     Dates: start: 20130227, end: 20130227
  4. PRIVIGEN [Suspect]
     Dosage: INFUSION RATE: MIN. 20.7 ML/H MAX. 103 ML/H
     Dates: start: 20130306, end: 20130306
  5. TORASEMIDE [Concomitant]
  6. CITALOPRAM [Concomitant]
  7. BISOPROLOL [Concomitant]

REACTIONS (1)
  - Pneumonia [Recovered/Resolved]
